FAERS Safety Report 23726725 (Version 1)
Quarter: 2024Q2

REPORT INFORMATION
  Report Type: Spontaneous
  Country: IN (occurrence: IN)
  Receive Date: 20240410
  Receipt Date: 20240410
  Transmission Date: 20240716
  Serious: Yes (Hospitalization, Other)
  Sender: FDA-Public Use
  Company Number: IN-SUN PHARMACEUTICAL INDUSTRIES LTD-2024R1-440233

PATIENT
  Age: 42 Year
  Sex: Female

DRUGS (1)
  1. VALPROATE [Suspect]
     Active Substance: VALPROIC ACID
     Indication: Neurocysticercosis
     Dosage: 500 MILLIGRAM, TID
     Route: 065

REACTIONS (2)
  - Drug level increased [Recovering/Resolving]
  - Hyperammonaemic encephalopathy [Recovering/Resolving]
